FAERS Safety Report 11277601 (Version 1)
Quarter: 2015Q3

REPORT INFORMATION
  Report Type: Spontaneous
  Country: BR (occurrence: BR)
  Receive Date: 20150716
  Receipt Date: 20150716
  Transmission Date: 20151125
  Serious: Yes (Other)
  Sender: FDA-Public Use
  Company Number: BR-ABBVIE-15P-020-1424305-00

PATIENT
  Age: 32 Year
  Sex: Female

DRUGS (3)
  1. SEVORANE [Suspect]
     Active Substance: SEVOFLURANE
     Indication: ANAESTHESIA
     Route: 055
     Dates: start: 20150707, end: 20150707
  2. SEVORANE [Suspect]
     Active Substance: SEVOFLURANE
     Route: 055
     Dates: start: 20150707, end: 20150707
  3. SEVORANE [Suspect]
     Active Substance: SEVOFLURANE
     Route: 055
     Dates: start: 20150707, end: 20150707

REACTIONS (2)
  - Anaesthetic complication [Unknown]
  - Unwanted awareness during anaesthesia [Unknown]

NARRATIVE: CASE EVENT DATE: 20150707
